FAERS Safety Report 23822525 (Version 1)
Quarter: 2024Q2

REPORT INFORMATION
  Report Type: Spontaneous
  Country: US (occurrence: US)
  Receive Date: 20240506
  Receipt Date: 20240506
  Transmission Date: 20240716
  Serious: No
  Sender: FDA-Public Use
  Company Number: US-009507513-2404USA012611

PATIENT
  Age: 19 Year
  Weight: 73.1 kg

DRUGS (2)
  1. PREVYMIS [Suspect]
     Active Substance: LETERMOVIR
     Indication: Antiviral prophylaxis
     Dosage: 480 MILLIGRAM, QD
     Route: 048
  2. VORICONAZOLE [Concomitant]
     Active Substance: VORICONAZOLE

REACTIONS (1)
  - Product use in unapproved indication [Unknown]
